FAERS Safety Report 24608406 (Version 1)
Quarter: 2024Q4

REPORT INFORMATION
  Report Type: Spontaneous
  Country: US (occurrence: US)
  Receive Date: 20241112
  Receipt Date: 20241112
  Transmission Date: 20250115
  Serious: Yes (Death)
  Sender: FRESENIUS MEDICAL CARE
  Company Number: US-FMCRTG-FMC-2411-001407

PATIENT
  Age: 75 Year
  Sex: Female
  Weight: 74 kg

DRUGS (2)
  1. DELFLEX WITH DEXTROSE 1.5% LOW MAGNESIUM LOW CALCIUM [Suspect]
     Active Substance: CALCIUM CHLORIDE\DEXTROSE\MAGNESIUM CHLORIDE\SODIUM CHLORIDE\SODIUM LACTATE
     Indication: End stage renal disease
     Dosage: DELFLEX AT 2500 ML FOR 5 CYCLES WITH A LAST FILL OF 2000 ML AND NO DAYTIME EXCHANGE.
     Route: 033
  2. DELFLEX WITH DEXTROSE 2.5% LOW MAGNESIUM LOW CALCIUM [Suspect]
     Active Substance: CALCIUM CHLORIDE\DEXTROSE\MAGNESIUM CHLORIDE\SODIUM CHLORIDE\SODIUM LACTATE
     Indication: End stage renal disease
     Dosage: DELFLEX AT 2500 ML FOR 5 CYCLES WITH A LAST FILL OF 2000 ML AND NO DAYTIME EXCHANGE.
     Route: 033

REACTIONS (1)
  - Myocardial infarction [Fatal]

NARRATIVE: CASE EVENT DATE: 20241031
